FAERS Safety Report 5137976-3 (Version None)
Quarter: 2006Q4

REPORT INFORMATION
  Report Type: 
  Country: None (occurrence: None)
  Receive Date: 20061030
  Receipt Date: 20060320
  Transmission Date: 20070319
  Serious: No
  Sender: FDA-Public Use
  Company Number: US-GLAXOSMITHKLINE-A0598990A

PATIENT
  Sex: Male

DRUGS (7)
  1. ADVAIR HFA [Suspect]
     Indication: DRUG USE FOR UNKNOWN INDICATION
     Route: 055
  2. NITRO-DUR [Concomitant]
  3. SOTALOL HYDROCHLORIDE [Concomitant]
     Dosage: 80MG TWICE PER DAY
  4. WARFARIN SODIUM [Concomitant]
     Dosage: 5MG TWICE PER DAY
  5. VYTORIN [Concomitant]
     Dosage: 10MG PER DAY
  6. PLAVIX [Concomitant]
  7. LISINOPRIL [Concomitant]
     Dosage: 5MG TWICE PER DAY

REACTIONS (1)
  - LIP BLISTER [None]
